FAERS Safety Report 4682424-0 (Version None)
Quarter: 2005Q2

REPORT INFORMATION
  Report Type: 
  Country: None (occurrence: None)
  Receive Date: 20050602
  Receipt Date: 20050602
  Transmission Date: 20051028
  Serious: Yes (Hospitalization)
  Sender: FDA-Public Use
  Company Number: None

PATIENT
  Age: 35 Year
  Sex: Male

DRUGS (8)
  1. ZYPREXA [Suspect]
     Indication: AFFECTIVE DISORDER
     Dosage: 20 MG PO Q HS
     Route: 048
     Dates: start: 20050131, end: 20050427
  2. ZYPREXA [Suspect]
     Indication: SCHIZOAFFECTIVE DISORDER
     Dosage: 20 MG PO Q HS
     Route: 048
     Dates: start: 20050131, end: 20050427
  3. NEURONTIN [Concomitant]
  4. MULTI-VITAMIN [Concomitant]
  5. ZOLOFT [Concomitant]
  6. THIAMINE [Concomitant]
  7. TRAZODONE [Concomitant]
  8. FOLIC ACID [Concomitant]

REACTIONS (2)
  - HYPERGLYCAEMIC HYPEROSMOLAR NONKETOTIC SYNDROME [None]
  - LETHARGY [None]
